FAERS Safety Report 18656085 (Version 1)
Quarter: 2020Q4

REPORT INFORMATION
  Report Type: Spontaneous
  Country: CI (occurrence: CI)
  Receive Date: 20201223
  Receipt Date: 20201223
  Transmission Date: 20210114
  Serious: Yes (Other)
  Sender: FDA-Public Use
  Company Number: NVSC2020CI338808

PATIENT
  Sex: Male

DRUGS (1)
  1. GLIVEC [Suspect]
     Active Substance: IMATINIB MESYLATE
     Indication: CHRONIC MYELOID LEUKAEMIA
     Dosage: 100 MG, QID (FOUR TIMES A DAY)
     Route: 065

REACTIONS (5)
  - Splenomegaly [Unknown]
  - Decreased appetite [Unknown]
  - Chronic myeloid leukaemia [Unknown]
  - Asthenia [Unknown]
  - Fatigue [Unknown]
